FAERS Safety Report 10033324 (Version 2)
Quarter: 2014Q1

REPORT INFORMATION
  Report Type: Spontaneous
  Country: GB (occurrence: GB)
  Receive Date: 20140325
  Receipt Date: 20140325
  Transmission Date: 20141002
  Serious: Yes (Other)
  Sender: FDA-Public Use
  Company Number: PHFR2013GB003803

PATIENT
  Age: 32 Year
  Sex: Female
  Weight: 67.7 kg

DRUGS (7)
  1. XOLAIR [Suspect]
     Indication: ASTHMA
     Dosage: 600 MG
     Route: 058
  2. THEOPHYLLINE [Suspect]
     Indication: ASTHMA
     Dosage: 500 MG DAILY
     Route: 048
  3. MONTELUKAST SODIUM [Suspect]
     Dosage: 10 MG, QD
  4. ALENDRONIC ACID [Suspect]
     Dosage: WEEKLY
  5. FEXOFENADINE [Suspect]
     Indication: ASTHMA
     Dosage: 180 MG, DAILY
     Route: 048
  6. SPIRIVA [Suspect]
     Indication: ASTHMA
     Dosage: UNK
  7. SYMBICORT [Suspect]
     Indication: ASTHMA
     Dosage: BID

REACTIONS (3)
  - Skin infection [Recovering/Resolving]
  - Haemorrhage [Recovered/Resolved]
  - Maternal exposure during pregnancy [Unknown]
